FAERS Safety Report 15790851 (Version 2)
Quarter: 2019Q1

REPORT INFORMATION
  Report Type: Spontaneous
  Country: FR (occurrence: FR)
  Receive Date: 20190104
  Receipt Date: 20190115
  Transmission Date: 20190417
  Serious: Yes (Other)
  Sender: FDA-Public Use
  Company Number: US-PFIZER INC-2018534620

PATIENT
  Age: 58 Year
  Sex: Male

DRUGS (2)
  1. TISSUCOL [Suspect]
     Active Substance: FIBRINOGEN HUMAN\THROMBIN HUMAN
     Dosage: UNK
  2. FIBRIN SEALANT NOS [Suspect]
     Active Substance: FIBRINOGEN HUMAN\THROMBIN HUMAN
     Dosage: UNK

REACTIONS (8)
  - Anti factor V antibody positive [Unknown]
  - Thrombin time prolonged [Recovering/Resolving]
  - Coagulation factor V level decreased [Recovering/Resolving]
  - Anti-thrombin antibody [Unknown]
  - Prothrombin time prolonged [Recovering/Resolving]
  - Haemorrhagic disorder [Unknown]
  - Activated partial thromboplastin time prolonged [Recovering/Resolving]
  - Coagulation factor VII level decreased [Unknown]
